FAERS Safety Report 15823009 (Version 1)
Quarter: 2019Q1

REPORT INFORMATION
  Report Type: Spontaneous
  Country: BR (occurrence: BR)
  Receive Date: 20190114
  Receipt Date: 20190114
  Transmission Date: 20190417
  Serious: Yes (Hospitalization)
  Sender: FDA-Public Use
  Company Number: BR-IMPAX LABORATORIES, LLC-2019-IPXL-00016

PATIENT
  Age: 36 Year
  Sex: Male

DRUGS (4)
  1. ALENDRONATE SODIUM IR [Suspect]
     Active Substance: ALENDRONATE SODIUM
     Indication: OSTEOGENESIS IMPERFECTA
     Dosage: 70 MILLIGRAM, 1 /WEEK
     Route: 065
  2. CHOLECALCIFEROL [Suspect]
     Active Substance: CHOLECALCIFEROL
     Indication: OSTEOGENESIS IMPERFECTA
     Dosage: UNK
     Route: 065
  3. CALCIUM CARBONATE. [Suspect]
     Active Substance: CALCIUM CARBONATE
     Indication: OSTEOGENESIS IMPERFECTA
     Dosage: UNK
     Route: 065
  4. CALCITRIOL. [Suspect]
     Active Substance: CALCITRIOL
     Indication: OSTEOGENESIS IMPERFECTA
     Dosage: UNK
     Route: 065

REACTIONS (1)
  - Hypophosphatasia [Recovering/Resolving]
